FAERS Safety Report 11421897 (Version 1)
Quarter: 2015Q3

REPORT INFORMATION
  Report Type: Report from Study
  Country: AU (occurrence: AU)
  Receive Date: 20150827
  Receipt Date: 20150827
  Transmission Date: 20151125
  Serious: Yes (Hospitalization)
  Sender: FDA-Public Use
  Company Number: AU-UNITED THERAPEUTICS-UTC-000349

PATIENT
  Age: 51 Year
  Sex: Female
  Weight: 85 kg

DRUGS (8)
  1. BOSENTAN [Concomitant]
     Active Substance: BOSENTAN
     Indication: PULMONARY ARTERIAL HYPERTENSION
  2. BURINEX [Concomitant]
     Active Substance: BUMETANIDE
     Indication: RIGHT VENTRICULAR FAILURE
     Dates: start: 20080611, end: 20080812
  3. UT-15C SR(SUSTAINED-RELEASE TABLET)(TREPROSTINIL DIETHANOLAMINE) [Suspect]
     Active Substance: TREPROSTINIL
     Dosage: 0.5MG AM, 1.0MG PM
     Route: 048
     Dates: start: 20080628, end: 20080811
  4. SILDENAFIL. [Concomitant]
     Active Substance: SILDENAFIL
     Dates: end: 20080810
  5. SILDENAFIL. [Concomitant]
     Active Substance: SILDENAFIL
     Indication: PULMONARY ARTERIAL HYPERTENSION
     Dosage: 25 MG, TID
     Dates: end: 20080810
  6. BURINEX [Concomitant]
     Active Substance: BUMETANIDE
     Dates: start: 20080819
  7. UT-15C SR(SUSTAINED-RELEASE TABLET)(TREPROSTINIL DIETHANOLAMINE) [Suspect]
     Active Substance: TREPROSTINIL
     Indication: PULMONARY ARTERIAL HYPERTENSION
  8. SILDENAFIL. [Concomitant]
     Active Substance: SILDENAFIL
     Dates: start: 20080811

REACTIONS (4)
  - Left ventricular dysfunction [Recovered/Resolved]
  - Pulmonary arterial hypertension [Recovered/Resolved]
  - Cardiac failure congestive [Not Recovered/Not Resolved]
  - Atrial fibrillation [Recovered/Resolved]

NARRATIVE: CASE EVENT DATE: 20080811
